FAERS Safety Report 6158204-6 (Version None)
Quarter: 2009Q2

REPORT INFORMATION
  Report Type: 
  Country: None (occurrence: None)
  Receive Date: 20090417
  Receipt Date: 20090413
  Transmission Date: 20091009
  Serious: No
  Sender: FDA-Public Use
  Company Number: US-B.I. PHARMACEUTICALS,INC./RIDGEFIELD-2009-BP-04636BP

PATIENT
  Age: 76 Year

DRUGS (1)
  1. FLOMAX [Suspect]

REACTIONS (1)
  - DYSURIA [None]
